FAERS Safety Report 6218948-4 (Version None)
Quarter: 2009Q2

REPORT INFORMATION
  Report Type: 
  Country: None (occurrence: None)
  Receive Date: 20090608
  Receipt Date: 20090529
  Transmission Date: 20091009
  Serious: Yes (Hospitalization, Other)
  Sender: FDA-Public Use
  Company Number: US-AMGEN-QUU349386

PATIENT
  Sex: Female

DRUGS (2)
  1. ENBREL [Suspect]
     Indication: RHEUMATOID ARTHRITIS
     Route: 058
     Dates: start: 20061101
  2. METHOTREXATE [Concomitant]

REACTIONS (12)
  - BACTERIAL SEPSIS [None]
  - COORDINATION ABNORMAL [None]
  - DISORIENTATION [None]
  - DYSARTHRIA [None]
  - GASTROINTESTINAL NECROSIS [None]
  - HYPOPHAGIA [None]
  - INTESTINAL FISTULA [None]
  - INTESTINAL PERFORATION [None]
  - LIVER DISORDER [None]
  - MECHANICAL VENTILATION [None]
  - SMALL INTESTINAL HAEMORRHAGE [None]
  - TRANSFUSION [None]
